FAERS Safety Report 8042485 (Version 2)
Quarter: 2013Q2

REPORT INFORMATION
  Report Type: Spontaneous
  Country: FR (occurrence: FR)
  Receive Date: 20110718
  Receipt Date: 20130528
  Transmission Date: 20140414
  Serious: Yes (Other)
  Sender: FDA-Public Use
  Company Number: FR-TEVA-289915ISR

PATIENT
  Age: 78 Year
  Sex: Female
  Weight: 43 kg

DRUGS (1)
  1. OXALIPLATINE TEVA 5MG/ ML CONCENTRATED SOLUTION FOR INFUSION [Suspect]
     Route: 042
     Dates: start: 20110621

REACTIONS (1)
  - Laryngospasm [Recovered/Resolved]
